FAERS Safety Report 9480743 (Version 1)
Quarter: 2013Q3

REPORT INFORMATION
  Report Type: Spontaneous
  Country: US (occurrence: US)
  Receive Date: 20130828
  Receipt Date: 20130828
  Transmission Date: 20140515
  Serious: Yes (Hospitalization, Other)
  Sender: FDA-Public Use
  Company Number: US-AMGEN-KDL111590

PATIENT
  Sex: Male

DRUGS (3)
  1. ENBREL [Suspect]
     Indication: ANKYLOSING SPONDYLITIS
     Dosage: 25 MG, 2 TIMES/WK
     Route: 065
     Dates: start: 20040901
  2. ENBREL [Suspect]
     Indication: PSORIASIS
  3. ENBREL [Suspect]
     Indication: OSTEOPOROSIS

REACTIONS (7)
  - Catheter site haemorrhage [Unknown]
  - Hospitalisation [Unknown]
  - Pneumonia [Not Recovered/Not Resolved]
  - Device related infection [Not Recovered/Not Resolved]
  - Aortic aneurysm [Unknown]
  - Testicular disorder [Unknown]
  - Decreased appetite [Unknown]
